FAERS Safety Report 9436209 (Version 1)
Quarter: 2013Q3

REPORT INFORMATION
  Report Type: Report from Study
  Country: TH (occurrence: TH)
  Receive Date: 20130801
  Receipt Date: 20130801
  Transmission Date: 20140515
  Serious: Yes (Death, Other)
  Sender: FDA-Public Use
  Company Number: TH-UCBSA-093827

PATIENT
  Age: 61 Year
  Sex: Male

DRUGS (6)
  1. LEVETIRACETAM [Suspect]
     Indication: STATUS EPILEPTICUS
     Dosage: MAINTENANCE DOSE: 1000 MG
     Route: 042
  2. PHENYTOIN [Concomitant]
  3. MEROPENEM [Concomitant]
  4. AMIKACIN [Concomitant]
  5. LEVOFLOXACIN [Concomitant]
  6. CEFTAZIDIME [Concomitant]

REACTIONS (1)
  - Cerebrovascular accident [Fatal]
